FAERS Safety Report 5055423-7 (Version None)
Quarter: 2006Q3

REPORT INFORMATION
  Report Type: 
  Country: None (occurrence: None)
  Receive Date: 20060714
  Receipt Date: 20060627
  Transmission Date: 20061208
  Serious: Yes (Death, Hospitalization, Other)
  Sender: FDA-Public Use
  Company Number: CH200606001892

PATIENT
  Age: 53 Year
  Sex: Female

DRUGS (6)
  1. ZYPREXA [Suspect]
     Indication: SCHIZOPHRENIA, PARANOID TYPE
     Dosage: 7.5 MG, DAILY (1/D), ORAL
     Route: 048
     Dates: start: 20060228
  2. CAPTOPRIL [Concomitant]
  3. FLUANXOL ^BAYER^ (FLUPENTIXOL DIHYDROCHLORIDE) [Concomitant]
  4. MST CONTINUS ^NAPP^ (MORPHINE SULFATE) [Concomitant]
  5. TIZANIDINE HCL [Concomitant]
  6. ZOLPIDEM TARTRATE [Concomitant]

REACTIONS (8)
  - BLOOD PRESSURE SYSTOLIC INCREASED [None]
  - DYSPNOEA [None]
  - FOREIGN BODY TRAUMA [None]
  - HEART RATE INCREASED [None]
  - LOSS OF CONSCIOUSNESS [None]
  - PULSE ABSENT [None]
  - RESPIRATORY ARREST [None]
  - STRIDOR [None]
